FAERS Safety Report 11808451 (Version 1)
Quarter: 2015Q4

REPORT INFORMATION
  Report Type: Spontaneous
  Country: US (occurrence: US)
  Receive Date: 20151207
  Receipt Date: 20151207
  Transmission Date: 20160305
  Serious: No
  Sender: FDA-Public Use
  Company Number: US-ROCHE-1488825

PATIENT
  Sex: Female

DRUGS (1)
  1. LUCENTIS [Suspect]
     Active Substance: RANIBIZUMAB
     Indication: RETINAL OEDEMA
     Route: 065
     Dates: start: 2014

REACTIONS (6)
  - Pain [Unknown]
  - Visual impairment [Recovered/Resolved]
  - Rhinorrhoea [Unknown]
  - Eye discharge [Unknown]
  - Headache [Recovered/Resolved]
  - Eye pain [Unknown]
